FAERS Safety Report 4389441-9 (Version None)
Quarter: 2004Q3

REPORT INFORMATION
  Report Type: 
  Country: None (occurrence: None)
  Receive Date: 20040702
  Receipt Date: 20040624
  Transmission Date: 20050211
  Serious: Yes (Other)
  Sender: FDA-Public Use
  Company Number: PHFR2004GB02612

PATIENT
  Sex: Male

DRUGS (3)
  1. LAMISIL [Suspect]
  2. TEGRETOL [Concomitant]
  3. PHENYTOIN [Concomitant]

REACTIONS (1)
  - CONVULSION [None]
